FAERS Safety Report 9785615 (Version 1)
Quarter: 2013Q4

REPORT INFORMATION
  Report Type: Spontaneous
  Country: IT (occurrence: IT)
  Receive Date: 20131227
  Receipt Date: 20131227
  Transmission Date: 20140711
  Serious: Yes (Other)
  Sender: FDA-Public Use
  Company Number: IT-ASTRAZENECA-2013SE92762

PATIENT
  Age: 7603 Day
  Sex: Male

DRUGS (3)
  1. TENORETIC [Suspect]
     Indication: TOXICITY TO VARIOUS AGENTS
     Dosage: 50MG+12.5 MG TABLETS, 2 DF
     Route: 048
     Dates: start: 20131108, end: 20131108
  2. TACHIPIRINA [Suspect]
     Indication: TOXICITY TO VARIOUS AGENTS
     Route: 048
     Dates: start: 20131108, end: 20131108
  3. LENDORMIN [Suspect]
     Indication: TOXICITY TO VARIOUS AGENTS
     Route: 048
     Dates: start: 20131108, end: 20131108

REACTIONS (4)
  - Hypotension [Recovering/Resolving]
  - Nausea [Recovering/Resolving]
  - Sopor [Recovering/Resolving]
  - Drug abuse [Unknown]
